FAERS Safety Report 8606688-3 (Version None)
Quarter: 2012Q3

REPORT INFORMATION
  Report Type: 
  Country: None (occurrence: None)
  Receive Date: 20120820
  Receipt Date: 20120814
  Transmission Date: 20120928
  Serious: Yes (Hospitalization)
  Sender: FDA-Public Use
  Company Number: US-ELI_LILLY_AND_COMPANY-US201205004145

PATIENT
  Sex: Male

DRUGS (1)
  1. HUMATROPE [Suspect]
     Indication: FAILURE TO THRIVE
     Dosage: 2.0 MG, UNK

REACTIONS (3)
  - INJURY [None]
  - STAPHYLOCOCCAL OSTEOMYELITIS [None]
  - BLISTER [None]
